FAERS Safety Report 5045127-9 (Version None)
Quarter: 2006Q3

REPORT INFORMATION
  Report Type: 
  Country: None (occurrence: None)
  Receive Date: 20060705
  Receipt Date: 20060619
  Transmission Date: 20061208
  Serious: Yes (Death, Hospitalization, Other)
  Sender: FDA-Public Use
  Company Number: 2006BI007630

PATIENT
  Sex: Female
  Weight: 111.1313 kg

DRUGS (8)
  1. AVONEX [Suspect]
     Indication: MULTIPLE SCLEROSIS
     Dosage: SEE IMAGE
     Route: 030
     Dates: start: 20040601, end: 20040723
  2. AVONEX [Suspect]
     Indication: MULTIPLE SCLEROSIS
     Dosage: SEE IMAGE
     Route: 030
     Dates: start: 20040730, end: 20040820
  3. AVONEX [Suspect]
     Indication: MULTIPLE SCLEROSIS
     Dosage: SEE IMAGE
     Route: 030
     Dates: start: 20040827
  4. COZAAR [Concomitant]
  5. ZOLOFT [Concomitant]
  6. WELLBUTRIN [Concomitant]
  7. PRILOSEC [Concomitant]
  8. LYRICA [Concomitant]

REACTIONS (8)
  - APNOEA [None]
  - CARDIO-RESPIRATORY ARREST [None]
  - CEREBRAL INFARCTION [None]
  - CORONARY ARTERY DISEASE [None]
  - DEPRESSION [None]
  - GASTROOESOPHAGEAL REFLUX DISEASE [None]
  - HOMOCYSTINAEMIA [None]
  - HYPERTENSION [None]
